FAERS Safety Report 4468125-2 (Version None)
Quarter: 2004Q4

REPORT INFORMATION
  Report Type: 
  Country: None (occurrence: None)
  Receive Date: 20041004
  Receipt Date: 20040921
  Transmission Date: 20050328
  Serious: Yes (Hospitalization)
  Sender: FDA-Public Use
  Company Number: 2004069066

PATIENT
  Sex: Female

DRUGS (7)
  1. PHENYTOIN SODIUM [Suspect]
     Indication: CIRCULATORY COLLAPSE
     Dosage: 300 MG (100 MG, TID INTERVAL: DAILY) ORAL
     Route: 048
     Dates: start: 20040807, end: 20040830
  2. PHENYTOIN SODIUM [Suspect]
     Indication: SYNCOPE
     Dosage: 300 MG (100 MG, TID INTERVAL: DAILY) ORAL
     Route: 048
     Dates: start: 20040807, end: 20040830
  3. CARBAMAZEPINE [Suspect]
     Indication: CIRCULATORY COLLAPSE
     Dosage: 800 MG (400 MG, 2 IN 1 D), ORAL
     Route: 048
     Dates: start: 20040816, end: 20040830
  4. CARBAMAZEPINE [Suspect]
     Indication: SYNCOPE
     Dosage: 800 MG (400 MG, 2 IN 1 D), ORAL
     Route: 048
     Dates: start: 20040816, end: 20040830
  5. GABAPENTIN [Concomitant]
  6. CLOMIPRAMINE HCL [Concomitant]
  7. BUPRENORPHINE (BUPRENORPHINE) [Concomitant]

REACTIONS (7)
  - ANAEMIA [None]
  - DRUG LEVEL DECREASED [None]
  - HYPERSENSITIVITY [None]
  - LEUKOPENIA [None]
  - LIVER FUNCTION TEST ABNORMAL [None]
  - PYREXIA [None]
  - TRANSAMINASES INCREASED [None]
